FAERS Safety Report 14115461 (Version 1)
Quarter: 2017Q4

REPORT INFORMATION
  Report Type: Spontaneous
  Country: US (occurrence: US)
  Receive Date: 20171023
  Receipt Date: 20171023
  Transmission Date: 20180321
  Serious: No
  Sender: FDA-Public Use
  Company Number: US-BAYER-2017-202755

PATIENT
  Sex: Female
  Weight: 61 kg

DRUGS (1)
  1. MIRALAX [Suspect]
     Active Substance: POLYETHYLENE GLYCOL 3350
     Indication: GASTROINTESTINAL DISORDER
     Dosage: 1 TBSP DAILY DOSE
     Route: 048

REACTIONS (3)
  - Incorrect dosage administered [Unknown]
  - Product use issue [Unknown]
  - Expired product administered [Unknown]
